FAERS Safety Report 7720064-7 (Version None)
Quarter: 2011Q3

REPORT INFORMATION
  Report Type: 
  Country: None (occurrence: None)
  Receive Date: 20110824
  Receipt Date: 20110809
  Transmission Date: 20111222
  Serious: Yes (Hospitalization, Other)
  Sender: FDA-Public Use
  Company Number: 2011MA011561

PATIENT
  Age: 16 Year
  Sex: Male

DRUGS (3)
  1. LORAZEPAM [Suspect]
     Indication: SCHIZOPHRENIA
     Dosage: 4 MG;TID;UNK
  2. HALOPERIDOL [Suspect]
     Indication: SCHIZOPHRENIA
     Dosage: 5 MG; BID; UNK
  3. ZUCLOPENTHIXOL (ZUCLOPENTHIXOL) [Suspect]
     Indication: SCHIZOPHRENIA
     Dosage: 50 MG;X2; IM
     Route: 030

REACTIONS (5)
  - RESTLESSNESS [None]
  - WHITE BLOOD CELL COUNT DECREASED [None]
  - DYSPHAGIA [None]
  - NEUROLEPTIC MALIGNANT SYNDROME [None]
  - PSYCHOTIC DISORDER [None]
